FAERS Safety Report 24750732 (Version 3)
Quarter: 2025Q1

REPORT INFORMATION
  Report Type: Spontaneous
  Country: CA (occurrence: CA)
  Receive Date: 20241218
  Receipt Date: 20250114
  Transmission Date: 20250409
  Serious: Yes (Life-Threatening, Hospitalization)
  Sender: PFIZER
  Company Number: CA-PFIZER INC-PV202400112452

PATIENT
  Age: 38 Year
  Sex: Female

DRUGS (6)
  1. LORBRENA [Interacting]
     Active Substance: LORLATINIB
     Indication: Non-small cell lung cancer
     Dosage: 75 MG, DAILY
     Route: 048
  2. LORBRENA [Interacting]
     Active Substance: LORLATINIB
     Route: 048
  3. PALIPERIDONE [Concomitant]
     Active Substance: PALIPERIDONE
     Indication: Schizophrenia
  4. PROCHLORPERAZINE [Concomitant]
     Active Substance: PROCHLORPERAZINE
     Indication: Nausea
     Dosage: 10 MG, DAILY
  5. INVEGA SUSTENNA [Concomitant]
     Active Substance: PALIPERIDONE PALMITATE
     Indication: Schizophrenia
     Dosage: 175 MG, MONTHLY
  6. FENOFIBRATE [Concomitant]
     Active Substance: FENOFIBRATE
     Indication: Hyperlipidaemia
     Dosage: 145 MG, DAILY

REACTIONS (2)
  - Drug interaction [Recovering/Resolving]
  - Off label use [Unknown]

NARRATIVE: CASE EVENT DATE: 20241119
